FAERS Safety Report 7043925-3 (Version None)
Quarter: 2010Q4

REPORT INFORMATION
  Report Type: 
  Country: None (occurrence: None)
  Receive Date: 20101012
  Receipt Date: 20101012
  Transmission Date: 20110411
  Serious: Yes (Hospitalization)
  Sender: FDA-Public Use
  Company Number: None

PATIENT
  Age: 47 Year
  Sex: Female
  Weight: 56.6996 kg

DRUGS (1)
  1. BONIVA [Suspect]
     Indication: OSTEOPENIA
     Dosage: 150MG MONTHLY PO
     Route: 048
     Dates: start: 20091104, end: 20100404

REACTIONS (13)
  - BONE PAIN [None]
  - DEHYDRATION [None]
  - GASTROINTESTINAL DISORDER [None]
  - HYPOTENSION [None]
  - INFLUENZA LIKE ILLNESS [None]
  - NAUSEA [None]
  - PYREXIA [None]
  - RASH [None]
  - RETCHING [None]
  - SYNCOPE [None]
  - TACHYCARDIA [None]
  - VIRAL INFECTION [None]
  - VOMITING [None]
